FAERS Safety Report 5788693-8 (Version None)
Quarter: 2008Q2

REPORT INFORMATION
  Report Type: 
  Country: None (occurrence: None)
  Receive Date: 20080626
  Receipt Date: 20080619
  Transmission Date: 20081010
  Serious: Yes (Hospitalization)
  Sender: FDA-Public Use
  Company Number: US-AMGEN-US288482

PATIENT
  Sex: Female

DRUGS (8)
  1. ENBREL [Suspect]
     Indication: RHEUMATOID ARTHRITIS
     Route: 058
     Dates: start: 20060802, end: 20061002
  2. METHOTREXATE [Suspect]
     Route: 030
  3. REMICADE [Suspect]
     Route: 042
     Dates: end: 20060721
  4. ARAVA [Suspect]
     Route: 048
  5. ULTRAM [Concomitant]
  6. FOLATE SODIUM [Concomitant]
  7. LEXAPRO [Concomitant]
  8. LIDODERM [Concomitant]

REACTIONS (1)
  - MENINGITIS TUBERCULOUS [None]
